FAERS Safety Report 18447618 (Version 1)
Quarter: 2020Q4

REPORT INFORMATION
  Report Type: Report from Study
  Country: CR (occurrence: CR)
  Receive Date: 20201101
  Receipt Date: 20201101
  Transmission Date: 20210114
  Serious: Yes (Other)
  Sender: FDA-Public Use
  Company Number: NVSC2020CR288380

PATIENT
  Age: 77 Year
  Sex: Female

DRUGS (4)
  1. EXFORGE [Suspect]
     Active Substance: AMLODIPINE BESYLATE\VALSARTAN
     Indication: PRODUCT USED FOR UNKNOWN INDICATION
     Dosage: UNK (160/5 MG START DATE WAS REPORTED AS: 2 MONTHS AGO AND STOP DATE AS: 21 DAYS AGO)
     Route: 065
  2. DIOVAN [Suspect]
     Active Substance: VALSARTAN
     Indication: PRODUCT USED FOR UNKNOWN INDICATION
     Dosage: 320 MG (STARTED 3 MONTHS AGO)
     Route: 065
  3. EXFORGE HCT [Suspect]
     Active Substance: AMLODIPINE BESYLATE\HYDROCHLOROTHIAZIDE\VALSARTAN
     Indication: PRODUCT USED FOR UNKNOWN INDICATION
     Dosage: START DATE WAS REPORTED AS: 21 DAYS AGO AND STOP DATE AS: IN TREATMENT
     Route: 065
  4. CO-DIOVAN [Suspect]
     Active Substance: HYDROCHLOROTHIAZIDE\VALSARTAN
     Indication: PRODUCT USED FOR UNKNOWN INDICATION
     Dosage: UNK
     Route: 065

REACTIONS (5)
  - Diabetes mellitus [Unknown]
  - Cardiac disorder [Unknown]
  - Illness [Unknown]
  - Hypertension [Unknown]
  - Drug ineffective [Unknown]
